FAERS Safety Report 7100521-7 (Version None)
Quarter: 2010Q4

REPORT INFORMATION
  Report Type: 
  Country: None (occurrence: None)
  Receive Date: 20101113
  Receipt Date: 20100216
  Transmission Date: 20110411
  Serious: No
  Sender: FDA-Public Use
  Company Number: US-ALLERGAN-1001995US

PATIENT
  Sex: Female

DRUGS (12)
  1. BOTOXA? [Suspect]
     Indication: BLEPHAROSPASM
     Dosage: 25 UNITS, SINGLE
     Route: 030
     Dates: start: 20100121, end: 20100121
  2. MICARDIS [Concomitant]
  3. TOPROL-XL [Concomitant]
  4. LIPITOR [Concomitant]
  5. NORVASC [Concomitant]
  6. GLUCOPHAGE [Concomitant]
  7. LASIX [Concomitant]
  8. LEVAQUIN [Concomitant]
  9. POLYETHYLENE GLYCOL [Concomitant]
  10. ATIVAN [Concomitant]
  11. NITROGLYCERIN [Concomitant]
  12. ASPIRIN [Concomitant]

REACTIONS (2)
  - DRUG INEFFECTIVE [None]
  - EYE SWELLING [None]
